FAERS Safety Report 11131203 (Version 1)
Quarter: 2015Q2

REPORT INFORMATION
  Report Type: Spontaneous
  Country: DE (occurrence: DE)
  Receive Date: 20150522
  Receipt Date: 20150522
  Transmission Date: 20150821
  Serious: Yes (Hospitalization, Other)
  Sender: FDA-Public Use
  Company Number: DE-CIPLA LTD.-2015DE03903

PATIENT

DRUGS (10)
  1. LAMOTRIGINE. [Suspect]
     Active Substance: LAMOTRIGINE
     Indication: EXTRAPYRAMIDAL DISORDER
  2. MIRTAZAPINE. [Suspect]
     Active Substance: MIRTAZAPINE
     Indication: SCHIZOAFFECTIVE DISORDER
     Dosage: 45 MG/DAY
  3. AMISULPRIDE [Suspect]
     Active Substance: AMISULPRIDE
     Indication: EXTRAPYRAMIDAL DISORDER
  4. AMISULPRIDE [Suspect]
     Active Substance: AMISULPRIDE
     Indication: SCHIZOAFFECTIVE DISORDER
     Dosage: 1200 MG/DAY
  5. LITHIUM CARBONATE. [Suspect]
     Active Substance: LITHIUM CARBONATE
     Indication: SCHIZOAFFECTIVE DISORDER
     Dosage: 18.3 MMOL/DAY)
  6. QUETIAPINE [Suspect]
     Active Substance: QUETIAPINE
     Indication: EXTRAPYRAMIDAL DISORDER
  7. MIRTAZAPINE. [Suspect]
     Active Substance: MIRTAZAPINE
     Indication: EXTRAPYRAMIDAL DISORDER
  8. QUETIAPINE [Suspect]
     Active Substance: QUETIAPINE
     Indication: SCHIZOAFFECTIVE DISORDER
     Dosage: 100 MG/DAY ON DAY 1 AND 150 MG/DAY FROM DAY 2
  9. LAMOTRIGINE. [Suspect]
     Active Substance: LAMOTRIGINE
     Indication: SCHIZOAFFECTIVE DISORDER
     Dosage: 100 MG/DAY
  10. LITHIUM CARBONATE. [Suspect]
     Active Substance: LITHIUM CARBONATE
     Indication: EXTRAPYRAMIDAL DISORDER

REACTIONS (7)
  - Tachycardia [None]
  - Urinary incontinence [None]
  - Asthenia [None]
  - Hyperhidrosis [None]
  - Extrapyramidal disorder [None]
  - Blood creatine phosphokinase increased [None]
  - Myalgia [None]
